FAERS Safety Report 7893757-9 (Version None)
Quarter: 2011Q4

REPORT INFORMATION
  Report Type: 
  Country: None (occurrence: None)
  Receive Date: 20111104
  Receipt Date: 20111028
  Transmission Date: 20120403
  Serious: Yes (Hospitalization, Other)
  Sender: FDA-Public Use
  Company Number: PHHY2011ES87281

PATIENT
  Age: 63 Year
  Sex: Male

DRUGS (3)
  1. TACROLIMUS [Concomitant]
     Dosage: 9 MG, UNK
  2. PREDNISONE [Suspect]
     Indication: OVERLAP SYNDROME
     Dosage: 60 MG, UNK
  3. AZATHIOPRINE [Concomitant]
     Dosage: 100 MG, UNK

REACTIONS (5)
  - RESPIRATORY FAILURE [None]
  - BLOOD ALKALINE PHOSPHATASE INCREASED [None]
  - LEFT VENTRICULAR HYPERTROPHY [None]
  - LIPOMATOSIS [None]
  - DYSPNOEA [None]
